FAERS Safety Report 8335803-4 (Version None)
Quarter: 2012Q2

REPORT INFORMATION
  Report Type: 
  Country: None (occurrence: None)
  Receive Date: 20120504
  Receipt Date: 20080819
  Transmission Date: 20120825
  Serious: Yes (Death, Disabling)
  Sender: FDA-Public Use
  Company Number: US-BAYER-200829840NA

PATIENT
  Sex: Male
  Weight: 58.957 kg

DRUGS (47)
  1. MAGNEVIST [Suspect]
     Dosage: 12 ML, ONCE
     Dates: start: 20040519, end: 20040519
  2. LOVENOX [Concomitant]
  3. ZOCOR [Concomitant]
  4. METRONIDAZOLE [Concomitant]
  5. ARANESP [Concomitant]
  6. MAGNEVIST [Suspect]
     Indication: NUCLEAR MAGNETIC RESONANCE IMAGING BRAIN
     Dosage: 10 ML, ONCE
     Route: 042
     Dates: start: 20021119, end: 20021119
  7. GADOLINIUM IN UNSPECIFIED DRUG [Suspect]
     Indication: NUCLEAR MAGNETIC RESONANCE IMAGING BRAIN
     Dosage: UNK UNK, ONCE
     Dates: start: 20040116, end: 20040116
  8. LORAZEPAM [Concomitant]
  9. MIRAPEX [Concomitant]
  10. SKELAXIN [Concomitant]
  11. MAGNEVIST [Suspect]
     Indication: NUCLEAR MAGNETIC RESONANCE IMAGING ABDOMINAL
     Dosage: 10 ML, ONCE
     Dates: start: 20031208, end: 20031208
  12. NORVASC [Concomitant]
  13. LASIX [Concomitant]
  14. COUMADIN [Concomitant]
  15. NEPHROCAPS [Concomitant]
  16. REGLAN [Concomitant]
  17. LEVOFLOXACIN [Concomitant]
  18. MYCOPHENOLATE MOFETIL (CELLCEPT) [Concomitant]
  19. FOSAMAX [Concomitant]
  20. MAGNEVIST [Suspect]
     Indication: NUCLEAR MAGNETIC RESONANCE IMAGING
     Dosage: 10 ML ,ONCE
     Route: 042
     Dates: start: 20031004, end: 20031004
  21. MAGNEVIST [Suspect]
     Indication: RENAL SCAN
     Dosage: 15 ML, ONCE
     Dates: start: 20051222, end: 20051222
  22. OMNISCAN [Suspect]
     Indication: NUCLEAR MAGNETIC RESONANCE IMAGING
  23. HALCION [Concomitant]
  24. EPOGEN [Concomitant]
  25. FERRLECIT [Concomitant]
  26. ASPIRIN [Concomitant]
  27. MAGNEVIST [Suspect]
     Dosage: 15 ML, ONCE
     Dates: start: 20031003, end: 20031003
  28. MAGNEVIST [Suspect]
     Indication: ANGIOGRAM
     Dosage: 15 ML, ONCE
     Route: 042
     Dates: start: 20050909, end: 20050909
  29. MULTIHANCE [Suspect]
     Indication: NUCLEAR MAGNETIC RESONANCE IMAGING
  30. PREDNISONE TAB [Concomitant]
  31. ALLOPURINOL [Concomitant]
  32. PERCOCET [Concomitant]
  33. DILAUDID [Concomitant]
  34. IMDUR [Concomitant]
  35. NITROGLYCERIN [Concomitant]
  36. MAGNEVIST [Suspect]
     Dates: start: 20040618, end: 20040618
  37. MAGNEVIST [Suspect]
     Dosage: 15 ML, ONCE
     Dates: start: 20040304, end: 20040304
  38. OPTIMARK [Suspect]
     Indication: NUCLEAR MAGNETIC RESONANCE IMAGING
  39. METOPROLOL TARTRATE [Concomitant]
  40. NEXIUM [Concomitant]
  41. AMITRIPTYLINE HCL [Concomitant]
  42. MAGNEVIST [Suspect]
     Dosage: 20 ML, ONCE
     Dates: start: 20050930, end: 20050930
  43. PROHANCE [Suspect]
     Indication: NUCLEAR MAGNETIC RESONANCE IMAGING
  44. CELEBREX [Concomitant]
  45. MAGNEVIST [Suspect]
     Dates: start: 20040705, end: 20040705
  46. MAGNEVIST [Suspect]
     Dosage: 15 ML, ONCE
     Dates: start: 20031003, end: 20031003
  47. FLEXERIL [Concomitant]

REACTIONS (14)
  - OEDEMA PERIPHERAL [None]
  - MUSCULAR WEAKNESS [None]
  - PAIN IN EXTREMITY [None]
  - PAIN [None]
  - ANXIETY [None]
  - NEPHROGENIC SYSTEMIC FIBROSIS [None]
  - EMOTIONAL DISTRESS [None]
  - FEAR [None]
  - MUSCLE CONTRACTURE [None]
  - INJURY [None]
  - SKIN HYPERTROPHY [None]
  - FIBROSIS [None]
  - ABASIA [None]
  - MOBILITY DECREASED [None]
